FAERS Safety Report 13707002 (Version 2)
Quarter: 2017Q3

REPORT INFORMATION
  Report Type: Report from Study
  Country: JP (occurrence: JP)
  Receive Date: 20170630
  Receipt Date: 20170720
  Transmission Date: 20171127
  Serious: Yes (Hospitalization)
  Sender: FDA-Public Use
  Company Number: JP-ASTRAZENECA-2017SE67322

PATIENT
  Age: 27584 Day
  Sex: Male

DRUGS (108)
  1. OPDIVO [Concomitant]
     Active Substance: NIVOLUMAB
     Indication: LUNG NEOPLASM MALIGNANT
     Route: 042
     Dates: start: 20170110, end: 20170110
  2. OPDIVO [Concomitant]
     Active Substance: NIVOLUMAB
     Indication: LUNG NEOPLASM MALIGNANT
     Route: 042
     Dates: start: 20170221, end: 20170221
  3. RANMARK [Concomitant]
     Active Substance: DENOSUMAB
     Indication: METASTASES TO BONE
     Route: 058
     Dates: start: 20170124, end: 20170124
  4. BIOFERMIN R [Concomitant]
     Active Substance: BACILLUS SUBTILIS\LACTOBACILLUS ACIDOPHILUS\STREPTOCOCCUS FAECAIS
     Indication: PROPHYLAXIS
     Route: 048
     Dates: start: 20170403, end: 20170407
  5. MAGMITT [Concomitant]
     Active Substance: MAGNESIUM OXIDE
     Indication: CONSTIPATION
     Route: 048
     Dates: start: 20170104, end: 20170322
  6. MAGMITT [Concomitant]
     Active Substance: MAGNESIUM OXIDE
     Indication: CONSTIPATION
     Route: 048
     Dates: start: 20170323, end: 20170430
  7. CALONAL [Concomitant]
     Active Substance: ACETAMINOPHEN
     Indication: FEBRILE NEUTROPENIA
     Route: 048
     Dates: start: 20170107, end: 20170107
  8. SP [Concomitant]
     Indication: BRONCHITIS BACTERIAL
     Route: 048
     Dates: start: 20170107, end: 20170112
  9. DOCETAXEL. [Concomitant]
     Active Substance: DOCETAXEL
     Indication: LUNG NEOPLASM MALIGNANT
     Route: 042
     Dates: start: 20170301, end: 20170301
  10. RAMOSETRON HYDROCHLORIDE [Concomitant]
     Active Substance: RAMOSETRON HYDROCHLORIDE
     Indication: NAUSEA
     Route: 042
     Dates: start: 20170307, end: 20170307
  11. OMEGACIN [Concomitant]
     Active Substance: BIAPENEM
     Indication: PNEUMONIA
     Route: 042
     Dates: start: 20170311, end: 20170318
  12. WYSTAL [Concomitant]
     Active Substance: CEFOPERAZONE SODIUM\SULBACTAM SODIUM
     Indication: SMALL INTESTINE CARCINOMA
     Route: 042
     Dates: start: 20170417, end: 20170503
  13. REBAMIPIDE [Concomitant]
     Active Substance: REBAMIPIDE
     Indication: GASTRIC ULCER
     Route: 048
     Dates: start: 20170523
  14. RESTAMIN [Concomitant]
     Active Substance: DIPHENHYDRAMINE
     Indication: RASH
     Route: 062
     Dates: start: 20170524, end: 20170531
  15. TRAMADOL HYDROCHLORIDE. [Concomitant]
     Active Substance: TRAMADOL HYDROCHLORIDE
     Indication: CANCER PAIN
     Route: 048
     Dates: start: 20161216, end: 20170329
  16. OPDIVO [Concomitant]
     Active Substance: NIVOLUMAB
     Indication: LUNG NEOPLASM MALIGNANT
     Route: 042
     Dates: start: 20161227, end: 20161227
  17. AMBROXOL HYDROCHLORIDE [Concomitant]
     Active Substance: AMBROXOL HYDROCHLORIDE
     Indication: BRONCHITIS BACTERIAL
     Route: 048
     Dates: start: 20170107, end: 20170112
  18. DEXART [Concomitant]
     Active Substance: DEXAMETHASONE SODIUM PHOSPHATE
     Indication: PROPHYLAXIS
     Route: 042
     Dates: start: 20170412, end: 20170412
  19. DOCETAXEL. [Concomitant]
     Active Substance: DOCETAXEL
     Indication: LUNG NEOPLASM MALIGNANT
     Route: 042
     Dates: start: 20170516, end: 20170516
  20. GRAN [Concomitant]
     Active Substance: FILGRASTIM
     Indication: FEBRILE NEUTROPENIA
     Route: 042
     Dates: start: 20170308, end: 20170311
  21. ZOSYN [Concomitant]
     Active Substance: PIPERACILLIN SODIUM\TAZOBACTAM SODIUM
     Indication: FEBRILE NEUTROPENIA
     Route: 042
     Dates: start: 20170308, end: 20170311
  22. ZOSYN [Concomitant]
     Active Substance: PIPERACILLIN SODIUM\TAZOBACTAM SODIUM
     Indication: SMALL INTESTINE CARCINOMA
     Route: 042
     Dates: start: 20170324, end: 20170403
  23. OMEGACIN [Concomitant]
     Active Substance: BIAPENEM
     Indication: PROPHYLAXIS
     Route: 042
     Dates: start: 20170504, end: 20170511
  24. UREPEARL [Concomitant]
     Active Substance: UREA
     Indication: RASH
     Route: 062
     Dates: start: 20170313
  25. FEXOFENADINE HYDROCHLORIDE. [Concomitant]
     Active Substance: FEXOFENADINE HYDROCHLORIDE
     Indication: RASH
     Route: 048
     Dates: start: 20170316, end: 20170318
  26. WYSTAL [Concomitant]
     Active Substance: CEFOPERAZONE SODIUM\SULBACTAM SODIUM
     Indication: PROPHYLAXIS
     Route: 042
     Dates: start: 20170319, end: 20170320
  27. MORPHINE HYDROCHLORIDE [Concomitant]
     Active Substance: MORPHINE HYDROCHLORIDE
     Indication: PANCREATITIS ACUTE
     Route: 042
     Dates: start: 20170503, end: 20170503
  28. CEFTRIAXONE SODIUM. [Concomitant]
     Active Substance: CEFTRIAXONE SODIUM
     Indication: FEBRILE NEUTROPENIA
     Route: 042
     Dates: start: 20170520, end: 20170521
  29. RANMARK [Concomitant]
     Active Substance: DENOSUMAB
     Indication: METASTASES TO BONE
     Route: 058
     Dates: start: 20170221, end: 20170221
  30. AMOXICILLIN. [Concomitant]
     Active Substance: AMOXICILLIN
     Indication: BRONCHITIS BACTERIAL
     Route: 048
     Dates: start: 20161231, end: 20170101
  31. AUGMENTIN [Concomitant]
     Active Substance: AMOXICILLIN\CLAVULANATE POTASSIUM
     Indication: BRONCHITIS BACTERIAL
     Route: 048
     Dates: start: 20161231, end: 20170104
  32. CALONAL [Concomitant]
     Active Substance: ACETAMINOPHEN
     Indication: PYREXIA
     Dosage: 600.0MG AS REQUIRED
     Route: 048
     Dates: start: 20170207, end: 20170307
  33. POLARAMINE [Concomitant]
     Active Substance: DEXCHLORPHENIRAMINE MALEATE
     Indication: PROPHYLAXIS
     Route: 042
     Dates: start: 20170301, end: 20170301
  34. ZOSYN [Concomitant]
     Active Substance: PIPERACILLIN SODIUM\TAZOBACTAM SODIUM
     Indication: FEBRILE NEUTROPENIA
     Route: 042
     Dates: start: 20170324, end: 20170403
  35. ZOSYN [Concomitant]
     Active Substance: PIPERACILLIN SODIUM\TAZOBACTAM SODIUM
     Indication: SMALL INTESTINE CARCINOMA
     Route: 042
     Dates: start: 20170521, end: 20170529
  36. WYSTAL [Concomitant]
     Active Substance: CEFOPERAZONE SODIUM\SULBACTAM SODIUM
     Indication: SMALL INTESTINE CARCINOMA
     Route: 042
     Dates: start: 20170318, end: 20170318
  37. WHITE PETROLATUM [Concomitant]
     Active Substance: PETROLATUM
     Indication: PRURITUS
     Route: 062
     Dates: start: 20170407, end: 20170410
  38. PEGFILGRASTIM [Concomitant]
     Active Substance: PEGFILGRASTIM
     Indication: PROPHYLAXIS
     Route: 058
     Dates: start: 20170413, end: 20170413
  39. BIOFERMIN [Concomitant]
     Active Substance: BACILLUS SUBTILIS\LACTOBACILLUS ACIDOPHILUS\STREPTOCOCCUS FAECAIS
     Indication: PROPHYLAXIS
     Route: 048
     Dates: end: 20170329
  40. LORATADINE. [Concomitant]
     Active Substance: LORATADINE
     Indication: DRY SKIN
     Route: 048
     Dates: start: 20170207, end: 20170329
  41. LORATADINE. [Concomitant]
     Active Substance: LORATADINE
     Indication: DRY SKIN
     Route: 048
     Dates: start: 20170411, end: 20170414
  42. OPDIVO [Concomitant]
     Active Substance: NIVOLUMAB
     Indication: LUNG NEOPLASM MALIGNANT
     Route: 042
     Dates: start: 20170124, end: 20170124
  43. RANMARK [Concomitant]
     Active Substance: DENOSUMAB
     Indication: METASTASES TO BONE
     Route: 058
     Dates: start: 20161228, end: 20161228
  44. BIOFERMIN R [Concomitant]
     Active Substance: BACILLUS SUBTILIS\LACTOBACILLUS ACIDOPHILUS\STREPTOCOCCUS FAECAIS
     Indication: PROPHYLAXIS
     Route: 048
     Dates: start: 20161231, end: 20170104
  45. BIOFERMIN R [Concomitant]
     Active Substance: BACILLUS SUBTILIS\LACTOBACILLUS ACIDOPHILUS\STREPTOCOCCUS FAECAIS
     Indication: DIARRHOEA
     Route: 048
     Dates: start: 20161231, end: 20170104
  46. CALONAL [Concomitant]
     Active Substance: ACETAMINOPHEN
     Indication: FEBRILE NEUTROPENIA
     Dosage: 600.0MG AS REQUIRED
     Route: 048
     Dates: start: 20170308, end: 20170312
  47. CYRAMZA [Concomitant]
     Active Substance: RAMUCIRUMAB
     Indication: LUNG NEOPLASM MALIGNANT
     Route: 042
     Dates: start: 20170301, end: 20170301
  48. GRAN [Concomitant]
     Active Substance: FILGRASTIM
     Indication: FEBRILE NEUTROPENIA
     Route: 042
     Dates: start: 20170522, end: 20170523
  49. ZOSYN [Concomitant]
     Active Substance: PIPERACILLIN SODIUM\TAZOBACTAM SODIUM
     Indication: FEBRILE NEUTROPENIA
     Route: 042
     Dates: start: 20170521, end: 20170529
  50. OMEGACIN [Concomitant]
     Active Substance: BIAPENEM
     Indication: PROPHYLAXIS
     Route: 042
     Dates: start: 20170311, end: 20170318
  51. OMEGACIN [Concomitant]
     Active Substance: BIAPENEM
     Indication: PNEUMONIA
     Route: 042
     Dates: start: 20170504, end: 20170511
  52. AVELOX [Concomitant]
     Active Substance: MOXIFLOXACIN HYDROCHLORIDE
     Indication: PROPHYLAXIS
     Route: 048
     Dates: start: 20170403, end: 20170406
  53. METOCLOPRAMIDE. [Concomitant]
     Active Substance: METOCLOPRAMIDE
     Indication: PANCREATITIS ACUTE
     Route: 042
     Dates: start: 20170417, end: 20170417
  54. SOSEGON [Concomitant]
     Active Substance: PENTAZOCINE
     Indication: PANCREATITIS ACUTE
     Route: 042
     Dates: start: 20170503, end: 20170503
  55. ROPION [Concomitant]
     Active Substance: FLURBIPROFEN AXETIL
     Indication: PANCREATITIS ACUTE
     Route: 042
     Dates: start: 20170503, end: 20170503
  56. ALLOID G [Concomitant]
     Active Substance: SODIUM ALGINATE
     Indication: GASTRIC ULCER
     Route: 048
     Dates: start: 20170518, end: 20170601
  57. MOHRUS TAPE L [Concomitant]
     Active Substance: KETOPROFEN
     Indication: PERIPHERAL SWELLING
     Route: 062
     Dates: start: 20170525, end: 20170531
  58. CEFTAZIDIME. [Concomitant]
     Active Substance: CEFTAZIDIME
     Indication: PROPHYLAXIS
     Route: 042
     Dates: start: 20170529, end: 20170530
  59. INTRALIPOS [Concomitant]
     Active Substance: SOYBEAN OIL
     Indication: DECREASED APPETITE
     Route: 042
     Dates: start: 20170526, end: 20170606
  60. LORATADINE. [Concomitant]
     Active Substance: LORATADINE
     Indication: DRY SKIN
     Route: 048
     Dates: start: 20161118, end: 20161231
  61. LORATADINE. [Concomitant]
     Active Substance: LORATADINE
     Indication: RHINITIS ALLERGIC
     Route: 048
     Dates: start: 20170207, end: 20170329
  62. OPDIVO [Concomitant]
     Active Substance: NIVOLUMAB
     Indication: LUNG NEOPLASM MALIGNANT
     Route: 042
     Dates: start: 20170207, end: 20170207
  63. TRAMCET [Concomitant]
     Active Substance: ACETAMINOPHEN\TRAMADOL
     Indication: CANCER PAIN
     Dosage: 4 DF, DAILY
     Route: 048
     Dates: start: 20170527
  64. CALONAL [Concomitant]
     Active Substance: ACETAMINOPHEN
     Indication: PYREXIA
     Route: 048
     Dates: start: 20170107, end: 20170107
  65. CALONAL [Concomitant]
     Active Substance: ACETAMINOPHEN
     Indication: PYREXIA
     Route: 048
     Dates: start: 20170107, end: 20170107
  66. CALONAL [Concomitant]
     Active Substance: ACETAMINOPHEN
     Indication: FEBRILE NEUTROPENIA
     Dosage: 600.0MG AS REQUIRED
     Route: 048
     Dates: start: 20170207, end: 20170307
  67. CALONAL [Concomitant]
     Active Substance: ACETAMINOPHEN
     Indication: PYREXIA
     Dosage: 600.0MG AS REQUIRED
     Route: 048
     Dates: start: 20170308, end: 20170312
  68. CALONAL [Concomitant]
     Active Substance: ACETAMINOPHEN
     Indication: PYREXIA
     Dosage: 600.0MG AS REQUIRED
     Route: 048
     Dates: start: 20170308, end: 20170312
  69. POLARAMINE [Concomitant]
     Active Substance: DEXCHLORPHENIRAMINE MALEATE
     Indication: PROPHYLAXIS
     Route: 042
     Dates: start: 20170516, end: 20170516
  70. RAMOSETRON HYDROCHLORIDE [Concomitant]
     Active Substance: RAMOSETRON HYDROCHLORIDE
     Indication: NAUSEA
     Route: 042
     Dates: start: 20170305, end: 20170305
  71. GLYCYRRHIZIC ACID, AMMONIUM SALT [Concomitant]
     Indication: RASH
     Route: 042
     Dates: start: 20170318, end: 20170320
  72. PEGFILGRASTIM [Concomitant]
     Active Substance: PEGFILGRASTIM
     Indication: PROPHYLAXIS
     Route: 058
     Dates: start: 20170518, end: 20170518
  73. METOCLOPRAMIDE. [Concomitant]
     Active Substance: METOCLOPRAMIDE
     Indication: PANCREATITIS ACUTE
     Route: 042
     Dates: start: 20170503, end: 20170503
  74. EKLIRA GENUAIR [Suspect]
     Active Substance: ACLIDINIUM BROMIDE
     Indication: CHRONIC OBSTRUCTIVE PULMONARY DISEASE
     Route: 055
     Dates: start: 20170411
  75. NINJIN-YOEI-TO [Concomitant]
     Indication: PROPHYLAXIS
     Dosage: 3 DF, DAILY
     Dates: end: 20170329
  76. MELOXICAM. [Concomitant]
     Active Substance: MELOXICAM
     Indication: BACK PAIN
     Route: 048
     Dates: end: 20161225
  77. LORATADINE. [Concomitant]
     Active Substance: LORATADINE
     Indication: RASH
     Route: 048
     Dates: start: 20161118, end: 20161231
  78. DENOTAS [Concomitant]
     Active Substance: CALCIUM CARBONATE\CHOLECALCIFEROL\MAGNESIUM CARBONATE
     Indication: PROPHYLAXIS
     Dosage: 2 DF, DAILY
     Route: 048
     Dates: start: 20161228, end: 20170412
  79. CALONAL [Concomitant]
     Active Substance: ACETAMINOPHEN
     Indication: PYREXIA
     Dosage: 600.0MG AS REQUIRED
     Route: 048
     Dates: start: 20170207, end: 20170307
  80. CYRAMZA [Concomitant]
     Active Substance: RAMUCIRUMAB
     Indication: LUNG NEOPLASM MALIGNANT
     Route: 042
     Dates: start: 20170516, end: 20170516
  81. DOCETAXEL. [Concomitant]
     Active Substance: DOCETAXEL
     Indication: LUNG NEOPLASM MALIGNANT
     Route: 042
     Dates: start: 20170412, end: 20170412
  82. METOCLOPRAMIDE. [Concomitant]
     Active Substance: METOCLOPRAMIDE
     Indication: SMALL INTESTINE CARCINOMA
     Route: 042
     Dates: start: 20170417, end: 20170417
  83. METOCLOPRAMIDE. [Concomitant]
     Active Substance: METOCLOPRAMIDE
     Indication: SMALL INTESTINE CARCINOMA
     Route: 042
     Dates: start: 20170503, end: 20170503
  84. LORATADINE. [Concomitant]
     Active Substance: LORATADINE
     Indication: RHINITIS ALLERGIC
     Route: 048
     Dates: start: 20170411, end: 20170414
  85. LORATADINE. [Concomitant]
     Active Substance: LORATADINE
     Indication: RASH
     Route: 048
     Dates: start: 20170411, end: 20170414
  86. BIOFERMIN R [Concomitant]
     Active Substance: BACILLUS SUBTILIS\LACTOBACILLUS ACIDOPHILUS\STREPTOCOCCUS FAECAIS
     Indication: DIARRHOEA
     Route: 048
     Dates: start: 20170403, end: 20170407
  87. MS CONTIN [Concomitant]
     Active Substance: MORPHINE SULFATE
     Indication: CANCER PAIN
     Route: 048
     Dates: start: 20170104, end: 20170526
  88. PERORIC [Concomitant]
     Active Substance: DOMPERIDONE
     Indication: PROPHYLAXIS
     Route: 048
     Dates: start: 20170104
  89. DEXART [Concomitant]
     Active Substance: DEXAMETHASONE SODIUM PHOSPHATE
     Indication: PROPHYLAXIS
     Route: 042
     Dates: start: 20170301, end: 20170301
  90. CYRAMZA [Concomitant]
     Active Substance: RAMUCIRUMAB
     Indication: LUNG NEOPLASM MALIGNANT
     Route: 042
     Dates: start: 20170412, end: 20170412
  91. GOREI-SAN [Concomitant]
     Active Substance: HERBALS
     Indication: DIARRHOEA
     Dosage: 3 DF, DAILY
     Route: 048
     Dates: start: 20170403, end: 20170407
  92. WHITE PETROLATUM [Concomitant]
     Active Substance: PETROLATUM
     Indication: DRY SKIN
     Route: 062
     Dates: start: 20170407, end: 20170410
  93. REMINARON [Concomitant]
     Active Substance: GABEXATE MESYLATE
     Indication: PANCREATITIS ACUTE
     Route: 042
     Dates: start: 20170503, end: 20170508
  94. ELNEOPA NO. 1 [Concomitant]
     Indication: DECREASED APPETITE
     Route: 042
     Dates: start: 20170531, end: 20170601
  95. BIOFERMIN [Concomitant]
     Active Substance: BACILLUS SUBTILIS\LACTOBACILLUS ACIDOPHILUS\STREPTOCOCCUS FAECAIS
     Indication: PROPHYLAXIS
     Route: 048
     Dates: start: 20170413
  96. CARBOCISTEINE [Concomitant]
     Active Substance: CARBOCYSTEINE
     Indication: CHRONIC OBSTRUCTIVE PULMONARY DISEASE
     Route: 048
     Dates: end: 20170329
  97. DENOTAS [Concomitant]
     Active Substance: CALCIUM CARBONATE\CHOLECALCIFEROL\MAGNESIUM CARBONATE
     Indication: PROPHYLAXIS
     Dosage: 2 DF, DAILY
     Route: 048
     Dates: start: 20170529, end: 20170531
  98. BAKUMONDO-TO [Concomitant]
     Active Substance: HERBALS
     Indication: BRONCHITIS BACTERIAL
     Dosage: 3 DF, DAILY
     Route: 048
     Dates: start: 20161231, end: 20170104
  99. POLARAMINE [Concomitant]
     Active Substance: DEXCHLORPHENIRAMINE MALEATE
     Indication: PROPHYLAXIS
     Route: 042
     Dates: start: 20170412, end: 20170412
  100. ZOSYN [Concomitant]
     Active Substance: PIPERACILLIN SODIUM\TAZOBACTAM SODIUM
     Indication: SMALL INTESTINE CARCINOMA
     Route: 042
     Dates: start: 20170308, end: 20170311
  101. WYSTAL [Concomitant]
     Active Substance: CEFOPERAZONE SODIUM\SULBACTAM SODIUM
     Indication: PROPHYLAXIS
     Route: 042
     Dates: start: 20170318, end: 20170318
  102. WYSTAL [Concomitant]
     Active Substance: CEFOPERAZONE SODIUM\SULBACTAM SODIUM
     Indication: SMALL INTESTINE CARCINOMA
     Route: 042
     Dates: start: 20170319, end: 20170320
  103. WYSTAL [Concomitant]
     Active Substance: CEFOPERAZONE SODIUM\SULBACTAM SODIUM
     Indication: PROPHYLAXIS
     Route: 042
     Dates: start: 20170417, end: 20170503
  104. NAUZELIN [Concomitant]
     Active Substance: DOMPERIDONE
     Indication: NAUSEA
     Dosage: 60 MG/DAY PRN
     Route: 054
     Dates: start: 20170327, end: 20170330
  105. TAKECAB [Concomitant]
     Active Substance: VONOPRAZAN FUMURATE
     Indication: GASTRIC ULCER
     Route: 048
     Dates: start: 20170518
  106. EKLIRA GENUAIR [Suspect]
     Active Substance: ACLIDINIUM BROMIDE
     Indication: CHRONIC OBSTRUCTIVE PULMONARY DISEASE
     Route: 055
     Dates: start: 20161118, end: 20170227
  107. LORATADINE. [Concomitant]
     Active Substance: LORATADINE
     Indication: RHINITIS ALLERGIC
     Route: 048
     Dates: start: 20161118, end: 20161231
  108. LORATADINE. [Concomitant]
     Active Substance: LORATADINE
     Indication: RASH
     Route: 048
     Dates: start: 20170207, end: 20170329

REACTIONS (9)
  - Decreased appetite [Recovered/Resolved]
  - Pneumonia [Recovered/Resolved]
  - Lung neoplasm malignant [Unknown]
  - Biliary neoplasm [Recovered/Resolved]
  - Febrile neutropenia [Unknown]
  - Pancreatitis acute [Unknown]
  - Bronchitis bacterial [Recovered/Resolved]
  - Adverse reaction [Unknown]
  - Gastric ulcer [Unknown]

NARRATIVE: CASE EVENT DATE: 20161226
